FAERS Safety Report 16287665 (Version 2)
Quarter: 2019Q3

REPORT INFORMATION
  Report Type: Spontaneous
  Country: US (occurrence: US)
  Receive Date: 20190508
  Receipt Date: 20190719
  Transmission Date: 20191004
  Serious: Yes (Other)
  Sender: FDA-Public Use
  Company Number: US-ASTRAZENECA-2019SE59206

PATIENT
  Age: 22677 Day
  Sex: Female
  Weight: 120.7 kg

DRUGS (31)
  1. NEXIUM [Suspect]
     Active Substance: ESOMEPRAZOLE MAGNESIUM
     Indication: GASTROOESOPHAGEAL REFLUX DISEASE
     Route: 048
     Dates: start: 2004, end: 2017
  2. CLONIDINE. [Concomitant]
     Active Substance: CLONIDINE
  3. GLYBURIDE. [Concomitant]
     Active Substance: GLYBURIDE
  4. GABAPENTIN. [Concomitant]
     Active Substance: GABAPENTIN
  5. NEXIUM [Suspect]
     Active Substance: ESOMEPRAZOLE MAGNESIUM
     Indication: GASTROOESOPHAGEAL REFLUX DISEASE
     Route: 048
     Dates: start: 20130415, end: 201802
  6. IBUPROFEN. [Concomitant]
     Active Substance: IBUPROFEN
  7. ALLOPURINOL. [Concomitant]
     Active Substance: ALLOPURINOL
  8. BENZONATATE. [Concomitant]
     Active Substance: BENZONATATE
  9. METOLAZONE. [Concomitant]
     Active Substance: METOLAZONE
  10. AMLODIPINE BESYLATE. [Concomitant]
     Active Substance: AMLODIPINE BESYLATE
  11. NEXIUM [Suspect]
     Active Substance: ESOMEPRAZOLE MAGNESIUM
     Indication: GASTROOESOPHAGEAL REFLUX DISEASE
     Route: 065
     Dates: start: 20130110
  12. LYRICA [Concomitant]
     Active Substance: PREGABALIN
  13. HYDRALAZINE [Concomitant]
     Active Substance: HYDRALAZINE HYDROCHLORIDE
  14. ATORVASTATIN [Concomitant]
     Active Substance: ATORVASTATIN
  15. ZETIA [Concomitant]
     Active Substance: EZETIMIBE
  16. HYDROCODONE-ACETAMINOPHEN [Concomitant]
     Active Substance: ACETAMINOPHEN\HYDROCODONE
  17. LEVOTHYROXINE. [Concomitant]
     Active Substance: LEVOTHYROXINE
  18. ONDANSETRON [Concomitant]
     Active Substance: ONDANSETRON
  19. LIDODERM [Concomitant]
     Active Substance: LIDOCAINE
  20. TRAMADOL. [Concomitant]
     Active Substance: TRAMADOL
  21. FOLIC ACID. [Concomitant]
     Active Substance: FOLIC ACID
  22. NEXIUM [Suspect]
     Active Substance: ESOMEPRAZOLE MAGNESIUM
     Indication: GASTROOESOPHAGEAL REFLUX DISEASE
     Dosage: ESOMEPRAZOLE MAGNESIUM
     Route: 065
     Dates: start: 20181105
  23. PROTONIX [Suspect]
     Active Substance: PANTOPRAZOLE SODIUM
     Indication: GASTROOESOPHAGEAL REFLUX DISEASE
     Route: 065
     Dates: start: 2004, end: 2017
  24. FUROSEMIDE. [Concomitant]
     Active Substance: FUROSEMIDE
  25. METOPROLOL. [Concomitant]
     Active Substance: METOPROLOL
  26. KLOR-CON [Concomitant]
     Active Substance: POTASSIUM CHLORIDE
  27. LISINOPRIL. [Concomitant]
     Active Substance: LISINOPRIL
  28. PROTONIX [Suspect]
     Active Substance: PANTOPRAZOLE SODIUM
     Indication: GASTROOESOPHAGEAL REFLUX DISEASE
     Dosage: PANTOPRAZOLE
     Route: 065
     Dates: start: 20140226, end: 201507
  29. PROTONIX [Suspect]
     Active Substance: PANTOPRAZOLE SODIUM
     Indication: GASTROOESOPHAGEAL REFLUX DISEASE
     Route: 065
     Dates: start: 200401, end: 200506
  30. ISOSORBIDE. [Concomitant]
     Active Substance: ISOSORBIDE
  31. AZITHROMYCIN ANHYDROUS. [Concomitant]
     Active Substance: AZITHROMYCIN ANHYDROUS

REACTIONS (6)
  - Renal failure [Recovered/Resolved]
  - End stage renal disease [Not Recovered/Not Resolved]
  - Chronic kidney disease [Recovered/Resolved]
  - Acute kidney injury [Unknown]
  - Nephrogenic anaemia [Unknown]
  - Hyperparathyroidism secondary [Unknown]

NARRATIVE: CASE EVENT DATE: 20121119
